FAERS Safety Report 11552914 (Version 1)
Quarter: 2015Q3

REPORT INFORMATION
  Report Type: Spontaneous
  Country: US (occurrence: None)
  Receive Date: 20150924
  Receipt Date: 20150924
  Transmission Date: 20151125
  Serious: Yes (Life-Threatening, Hospitalization, Disabling)
  Sender: FDA-Public Use
  Company Number: None

PATIENT
  Age: 61 Year
  Sex: Male

DRUGS (2)
  1. PROPOFOL. [Suspect]
     Active Substance: PROPOFOL
     Indication: INDUCTION OF ANAESTHESIA
     Route: 042
     Dates: start: 20150725, end: 20150725
  2. CEFEPIME [Suspect]
     Active Substance: CEFEPIME HYDROCHLORIDE
     Indication: ANTIBIOTIC PROPHYLAXIS
     Route: 042
     Dates: start: 20150725, end: 20150725

REACTIONS (4)
  - Pulseless electrical activity [None]
  - Cardiac arrest [None]
  - Ventricular fibrillation [None]
  - Anaphylactic reaction [None]

NARRATIVE: CASE EVENT DATE: 20150725
